FAERS Safety Report 5507966-7 (Version None)
Quarter: 2007Q4

REPORT INFORMATION
  Report Type: 
  Country: None (occurrence: None)
  Receive Date: 20071106
  Receipt Date: 20071029
  Transmission Date: 20080405
  Serious: Yes (Other)
  Sender: FDA-Public Use
  Company Number: US-JNJFOC-20071008113

PATIENT
  Age: 54 Year
  Sex: Female
  Weight: 77.11 kg

DRUGS (5)
  1. TYLENOL (CAPLET) [Suspect]
  2. TYLENOL (CAPLET) [Suspect]
     Indication: PAIN
  3. TYLENOL (CAPLET) [Suspect]
  4. TYLENOL (CAPLET) [Suspect]
     Indication: PAIN
  5. VITAMINS [Concomitant]
     Indication: GENERAL PHYSICAL CONDITION

REACTIONS (3)
  - REACTION TO FOOD ADDITIVE [None]
  - SALIVARY HYPERSECRETION [None]
  - SWOLLEN TONGUE [None]
